FAERS Safety Report 6853579-4 (Version None)
Quarter: 2010Q3

REPORT INFORMATION
  Report Type: 
  Country: None (occurrence: None)
  Receive Date: 20100717
  Receipt Date: 20071208
  Transmission Date: 20110219
  Serious: No
  Sender: FDA-Public Use
  Company Number: US-PFIZER INC-2007105640

PATIENT
  Age: 48 Year
  Sex: Male
  Weight: 90.7 kg

DRUGS (4)
  1. CHANTIX [Suspect]
     Indication: SMOKING CESSATION THERAPY
     Dates: start: 20070101
  2. WELLBUTRIN XL [Concomitant]
  3. PAXIL [Concomitant]
  4. KLONOPIN [Concomitant]

REACTIONS (1)
  - ACNE [None]
